FAERS Safety Report 6181544-1 (Version None)
Quarter: 2009Q2

REPORT INFORMATION
  Report Type: 
  Country: None (occurrence: None)
  Receive Date: 20090506
  Receipt Date: 20090430
  Transmission Date: 20091009
  Serious: Yes (Other)
  Sender: FDA-Public Use
  Company Number: TR-ROXANE LABORATORIES, INC.-2009-RO-00429RO

PATIENT
  Age: 60 Year
  Sex: Male

DRUGS (7)
  1. CYCLOPHOSPHAMIDE [Suspect]
     Indication: LYMPHOMA
  2. METHOTREXATE [Suspect]
     Indication: LYMPHOMA
     Route: 037
  3. RITUXIMAB [Suspect]
     Indication: LYMPHOMA
  4. VINCRISTINE [Suspect]
     Indication: LYMPHOMA
  5. DOXORUBICIN HCL [Suspect]
     Indication: LYMPHOMA
  6. PREDNISOLONE [Suspect]
     Indication: LYMPHOMA
  7. ANTIBIOTICS [Concomitant]
     Indication: FEBRILE NEUTROPENIA

REACTIONS (5)
  - DRUG INEFFECTIVE [None]
  - FEBRILE NEUTROPENIA [None]
  - HAEMATOTOXICITY [None]
  - PARALYSIS [None]
  - VISION BLURRED [None]
